FAERS Safety Report 16528000 (Version 1)
Quarter: 2019Q3

REPORT INFORMATION
  Report Type: Spontaneous
  Country: US (occurrence: US)
  Receive Date: 20190704
  Receipt Date: 20190704
  Transmission Date: 20191004
  Serious: Yes (Other)
  Sender: FDA-Public Use
  Company Number: US-GLAXOSMITHKLINE-US2019117320

PATIENT
  Age: 66 Year
  Sex: Female

DRUGS (5)
  1. SENSODYNE COMPLETE PROTECTION EXTRA FRESH [Suspect]
     Active Substance: STANNOUS FLUORIDE
     Indication: HYPERAESTHESIA TEETH
     Dosage: UNK
     Route: 004
     Dates: end: 20190613
  2. SENSODYNE RAPID RELIEF [Suspect]
     Active Substance: STANNOUS FLUORIDE
     Indication: HYPERAESTHESIA TEETH
     Dosage: UNK
     Route: 004
     Dates: end: 20190613
  3. SENSODYNE RAPID RELIEF [Suspect]
     Active Substance: STANNOUS FLUORIDE
     Indication: GINGIVAL PAIN
  4. SENSODYNE COMPLETE PROTECTION EXTRA FRESH [Suspect]
     Active Substance: STANNOUS FLUORIDE
     Indication: HYPERAESTHESIA TEETH
     Dosage: UNK
     Dates: end: 20190613
  5. SENSODYNE REPAIR AND PROTECT [Suspect]
     Active Substance: STANNOUS FLUORIDE
     Indication: HYPERAESTHESIA TEETH
     Dosage: UNK
     Route: 004
     Dates: end: 20190613

REACTIONS (14)
  - Stomatitis [Recovering/Resolving]
  - Noninfective gingivitis [Recovering/Resolving]
  - Gingival pain [Recovering/Resolving]
  - Glossodynia [Recovering/Resolving]
  - Tongue discomfort [Recovered/Resolved]
  - Cheilitis [Recovering/Resolving]
  - Mouth ulceration [Recovering/Resolving]
  - Product use in unapproved indication [Unknown]
  - Taste disorder [Recovering/Resolving]
  - Lip dry [Recovering/Resolving]
  - Hypoaesthesia oral [Not Recovered/Not Resolved]
  - Oral pain [Recovering/Resolving]
  - Tongue ulceration [Recovering/Resolving]
  - Dysgeusia [Unknown]
